FAERS Safety Report 16324895 (Version 1)
Quarter: 2019Q2

REPORT INFORMATION
  Report Type: Spontaneous
  Country: IE (occurrence: IE)
  Receive Date: 20190517
  Receipt Date: 20190517
  Transmission Date: 20190711
  Serious: Yes (Other)
  Sender: FDA-Public Use
  Company Number: IE-TEVA-2019-IE-1050001

PATIENT
  Age: 83 Year
  Sex: Male

DRUGS (1)
  1. MIRTAZAPINE. [Suspect]
     Active Substance: MIRTAZAPINE
     Route: 048
     Dates: start: 20190313, end: 20190315

REACTIONS (1)
  - Hallucination, visual [Recovered/Resolved]

NARRATIVE: CASE EVENT DATE: 20190314
